FAERS Safety Report 4937212-4 (Version None)
Quarter: 2006Q1

REPORT INFORMATION
  Report Type: 
  Country: None (occurrence: None)
  Receive Date: 20060307
  Receipt Date: 20060307
  Transmission Date: 20060701
  Serious: Yes (Death, Life-Threatening)
  Sender: FDA-Public Use
  Company Number: None

PATIENT

DRUGS (2)
  1. SODIUM BICARBONATE [Suspect]
     Indication: CARDIO-RESPIRATORY ARREST
  2. SODIUM BICARBONATE [Suspect]

REACTIONS (1)
  - MEDICATION ERROR [None]
